FAERS Safety Report 24739353 (Version 1)
Quarter: 2024Q4

REPORT INFORMATION
  Report Type: Spontaneous
  Country: CN (occurrence: CN)
  Receive Date: 20241216
  Receipt Date: 20241216
  Transmission Date: 20250115
  Serious: Yes (Life-Threatening, Other)
  Sender: BAYER HEALTHCARE PHARMACEUTICALS INC.
  Company Number: CN-BAYER-2024A176927

PATIENT
  Age: 45 Year
  Sex: Male
  Weight: 78.5 kg

DRUGS (1)
  1. ULTRAVIST [Suspect]
     Active Substance: IOPROMIDE
     Indication: Angiocardiogram
     Dosage: 70 ML, ONCE
     Route: 042
     Dates: start: 20241202, end: 20241202

REACTIONS (3)
  - Adams-Stokes syndrome [Recovering/Resolving]
  - Ventricular fibrillation [Recovering/Resolving]
  - Blood pressure increased [None]

NARRATIVE: CASE EVENT DATE: 20241202
